FAERS Safety Report 21214644 (Version 1)
Quarter: 2022Q3

REPORT INFORMATION
  Report Type: Spontaneous
  Country: IN (occurrence: IN)
  Receive Date: 20220816
  Receipt Date: 20220816
  Transmission Date: 20221027
  Serious: Yes (Death, Other)
  Sender: FDA-Public Use
  Company Number: IN-SUN PHARMACEUTICAL INDUSTRIES LTD-2022R1-348340

PATIENT
  Age: 75 Year
  Sex: Male

DRUGS (9)
  1. MESALAMINE [Suspect]
     Active Substance: MESALAMINE
     Indication: Crohn^s disease
     Dosage: 1 GRAM, UNK
     Route: 065
  2. MESALAMINE [Suspect]
     Active Substance: MESALAMINE
     Indication: Hypothyroidism
  3. LEVOTHYROXINE SODIUM [Suspect]
     Active Substance: LEVOTHYROXINE SODIUM
     Indication: Hypothyroidism
     Dosage: 25 MICROGRAM, DAILY
     Route: 065
  4. LEVOTHYROXINE SODIUM [Suspect]
     Active Substance: LEVOTHYROXINE SODIUM
     Indication: Crohn^s disease
  5. REMDESIVIR [Concomitant]
     Active Substance: REMDESIVIR
     Indication: COVID-19
     Dosage: UNK
     Route: 065
  6. HEPARIN [Concomitant]
     Active Substance: HEPARIN SODIUM
     Indication: COVID-19
  7. ZINC [Concomitant]
     Active Substance: ZINC
     Indication: COVID-19
     Dosage: UNK
     Route: 065
  8. VITAMIN C [Concomitant]
     Active Substance: ASCORBIC ACID
     Indication: COVID-19
  9. ITOLIZUMAB [Concomitant]
     Active Substance: ITOLIZUMAB
     Indication: COVID-19

REACTIONS (2)
  - Chest pain [Fatal]
  - Respiratory distress [Fatal]
